FAERS Safety Report 9732168 (Version 1)
Quarter: 2013Q4

REPORT INFORMATION
  Report Type: Spontaneous
  Country: US (occurrence: None)
  Receive Date: 20131204
  Receipt Date: 20131204
  Transmission Date: 20140711
  Serious: Yes (Death)
  Sender: FDA-Public Use
  Company Number: None

PATIENT
  Age: 70 Year
  Sex: Male
  Weight: 139 kg

DRUGS (3)
  1. WARFARIN [Suspect]
     Indication: ATRIAL FIBRILLATION
     Route: 048
  2. WARFARIN [Suspect]
     Indication: DEEP VEIN THROMBOSIS
     Route: 048
  3. ENOXAPARIN [Suspect]
     Indication: PRODUCT USED FOR UNKNOWN INDICATION
     Route: 058

REACTIONS (5)
  - Hepatic haematoma [None]
  - Hypotension [None]
  - Multi-organ failure [None]
  - Pulseless electrical activity [None]
  - Cardio-respiratory arrest [None]
